FAERS Safety Report 24029031 (Version 1)
Quarter: 2024Q2

REPORT INFORMATION
  Report Type: Report from Study
  Country: JP (occurrence: JP)
  Receive Date: 20240628
  Receipt Date: 20240628
  Transmission Date: 20240715
  Serious: Yes (Other)
  Sender: FDA-Public Use
  Company Number: JP-teijin-202402170_XEO_P_1

PATIENT
  Age: 72 Year
  Sex: Female

DRUGS (1)
  1. XEOMIN [Suspect]
     Active Substance: INCOBOTULINUMTOXINA
     Indication: Muscle spasticity
     Route: 030
     Dates: start: 20231220, end: 20231220

REACTIONS (4)
  - Epilepsy [Unknown]
  - Pneumonia aspiration [Unknown]
  - Blister [Unknown]
  - Cellulitis [Unknown]

NARRATIVE: CASE EVENT DATE: 20240105
